FAERS Safety Report 8983011 (Version 2)
Quarter: 2012Q4

REPORT INFORMATION
  Report Type: 
  Country: BR (occurrence: BR)
  Receive Date: 20121220
  Receipt Date: 20121231
  Transmission Date: 20130627
  Serious: Yes (Hospitalization, Other)
  Sender: FDA-Public Use
  Company Number: BR-AMGEN-BRASP2012081653

PATIENT
  Age: 42 Year
  Sex: Female
  Weight: 60 kg

DRUGS (11)
  1. ENBREL [Suspect]
     Indication: RHEUMATOID ARTHRITIS
     Dosage: 50 mg, once weekly
     Route: 058
     Dates: start: 201208
  2. PARACETAMOL [Concomitant]
     Dosage: 500 mg, 1x/day
  3. PREDNISONE [Concomitant]
     Dosage: UNK
  4. REUQUINOL [Concomitant]
     Dosage: UNK
  5. METHOTREXATE [Concomitant]
     Dosage: UNK
  6. OSCAL D                            /00944201/ [Concomitant]
     Dosage: 400 mg, UNK
  7. PHENYTOIN [Concomitant]
     Dosage: UNK
  8. PURAN T4 [Concomitant]
     Dosage: 100 mg, 2x/day
     Route: 048
  9. OMEPRAZOLE [Concomitant]
     Dosage: 20 mg, UNK
  10. IBUPROFEN [Concomitant]
     Dosage: 500 mg, 1x/day
  11. FOLIC ACID [Concomitant]
     Dosage: UNK, 2x/day

REACTIONS (6)
  - Gait disturbance [Not Recovered/Not Resolved]
  - Balance disorder [Not Recovered/Not Resolved]
  - Arthralgia [Not Recovered/Not Resolved]
  - Joint warmth [Unknown]
  - Brain operation [Unknown]
  - Drug ineffective [Not Recovered/Not Resolved]
